FAERS Safety Report 16059823 (Version 1)
Quarter: 2019Q2

REPORT INFORMATION
  Report Type: Spontaneous
  Country: US (occurrence: US)
  Receive Date: 20190311
  Receipt Date: 20190311
  Transmission Date: 20190711
  Serious: Yes (Other)
  Sender: FDA-Public Use
  Company Number: None

PATIENT
  Age: 58 Year
  Sex: Male

DRUGS (1)
  1. KENALOG-40 [Suspect]
     Active Substance: TRIAMCINOLONE ACETONIDE
     Indication: RETINAL OEDEMA
     Route: 047
     Dates: start: 20190308, end: 20190308

REACTIONS (2)
  - Visual impairment [None]
  - Eye pain [None]

NARRATIVE: CASE EVENT DATE: 20190308
